FAERS Safety Report 6207588-9 (Version None)
Quarter: 2009Q2

REPORT INFORMATION
  Report Type: 
  Country: None (occurrence: None)
  Receive Date: 20090528
  Receipt Date: 20090519
  Transmission Date: 20091009
  Serious: Yes (Other)
  Sender: FDA-Public Use
  Company Number: US-AMGEN-QUU347903

PATIENT
  Sex: Female

DRUGS (4)
  1. ENBREL [Suspect]
     Indication: RHEUMATOID ARTHRITIS
     Route: 058
     Dates: end: 20081101
  2. ARAVA [Concomitant]
     Route: 048
  3. PLAQUENIL [Concomitant]
  4. SULFASALAZINE [Concomitant]

REACTIONS (5)
  - BREAST MASS [None]
  - FATIGUE [None]
  - RENAL COLIC [None]
  - SYNCOPE [None]
  - UPPER RESPIRATORY TRACT INFECTION [None]
